FAERS Safety Report 9669860 (Version 2)
Quarter: 2013Q4

REPORT INFORMATION
  Report Type: Report from Study
  Country: KR (occurrence: KR)
  Receive Date: 20131105
  Receipt Date: 20131230
  Transmission Date: 20140711
  Serious: Yes (Other)
  Sender: FDA-Public Use
  Company Number: PHHY2013KR124447

PATIENT
  Age: 76 Year
  Sex: Female

DRUGS (11)
  1. AMN107 [Suspect]
     Indication: CHRONIC MYELOID LEUKAEMIA
     Dosage: 800 MG, PER DAY
     Dates: start: 20120913
  2. MUCOPECT [Concomitant]
     Indication: UPPER RESPIRATORY TRACT INFECTION
     Dosage: 3 DF, UNK
     Route: 048
     Dates: start: 20121204, end: 20121211
  3. CODAEWON [Concomitant]
     Indication: UPPER RESPIRATORY TRACT INFECTION
     Dosage: 3 DF, UNK
     Dates: start: 20121204, end: 20121211
  4. PANCREATIN [Concomitant]
     Indication: DYSPEPSIA
     Dosage: 4T
     Route: 048
     Dates: start: 20120920, end: 20130315
  5. ACETAMINOPHEN [Concomitant]
     Indication: MYALGIA
     Dosage: 1950 MG, UNK
     Dates: start: 20120927, end: 20121003
  6. AFLOQUALONE [Concomitant]
     Indication: MYALGIA
     Dosage: 60 MG, UNK
     Route: 048
     Dates: start: 20120927, end: 20121003
  7. ATORVASTATIN [Concomitant]
     Indication: HYPERLIPIDAEMIA
     Dosage: 10 MG, UNK
     Route: 048
     Dates: start: 20090421
  8. CILNIDIPINE [Concomitant]
     Indication: CARDIAC DISORDER
     Dosage: 5 MG, UNK
     Route: 048
     Dates: start: 20051020
  9. RANITIDINE [Concomitant]
     Indication: GASTRIC ULCER
     Dosage: 1 T
     Route: 048
     Dates: start: 20120920, end: 20121116
  10. MOSAPRIDE CITRATE [Concomitant]
     Indication: DYSPEPSIA
     Dosage: 1 T
     Dates: start: 20120920, end: 20121116
  11. ZOLPIDEM [Concomitant]
     Indication: INSOMNIA
     Dosage: 6.25 MG, UNK
     Route: 048
     Dates: start: 20121004, end: 20121017

REACTIONS (5)
  - Blood alkaline phosphatase increased [Recovered/Resolved]
  - Alanine aminotransferase increased [Recovered/Resolved]
  - Aspartate aminotransferase increased [Recovered/Resolved]
  - Abdominal distension [Unknown]
  - Blood bilirubin increased [Recovered/Resolved]
